FAERS Safety Report 7366959-8 (Version None)
Quarter: 2011Q1

REPORT INFORMATION
  Report Type: 
  Country: None (occurrence: None)
  Receive Date: 20110322
  Receipt Date: 20110316
  Transmission Date: 20110831
  Serious: No
  Sender: FDA-Public Use
  Company Number: US-PFIZER INC-2011058810

PATIENT
  Sex: Female
  Weight: 10.431 kg

DRUGS (3)
  1. GENOTROPIN [Suspect]
     Indication: TURNER'S SYNDROME
     Dosage: 0.6 MG, 1X/DAY
     Dates: start: 20110203
  2. SINGULAIR [Concomitant]
     Indication: BRONCHIAL HYPERREACTIVITY
     Dosage: 4 MG, 1X/DAY
     Route: 048
     Dates: start: 20090101
  3. FLOVENT [Concomitant]
     Indication: BRONCHIAL HYPERREACTIVITY
     Dosage: 110 UG, 2X/DAY
     Dates: start: 20090101

REACTIONS (3)
  - PYREXIA [None]
  - HEADACHE [None]
  - VOMITING [None]
